FAERS Safety Report 9473460 (Version 3)
Quarter: 2014Q3

REPORT INFORMATION
  Report Type: Spontaneous
  Country: US (occurrence: US)
  Receive Date: 20130823
  Receipt Date: 20140808
  Transmission Date: 20150326
  Serious: Yes (Other)
  Sender: FDA-Public Use
  Company Number: US-BRISTOL-MYERS SQUIBB COMPANY-19012798

PATIENT
  Age: 71 Year
  Sex: Male

DRUGS (5)
  1. BABY ASPIRIN [Concomitant]
     Active Substance: ASPIRIN
  2. SPRYCEL [Suspect]
     Active Substance: DASATINIB
     Indication: CHRONIC MYELOID LEUKAEMIA
     Dosage: OFF FOR 5 DAYS
     Route: 048
     Dates: start: 201103
  3. TENORMIN [Concomitant]
     Active Substance: ATENOLOL
  4. SPRYCEL [Suspect]
     Active Substance: DASATINIB
     Indication: CHROMOSOME ANALYSIS ABNORMAL
     Dosage: OFF FOR 5 DAYS
     Route: 048
     Dates: start: 201103
  5. LASIX [Concomitant]
     Active Substance: FUROSEMIDE

REACTIONS (2)
  - Pulmonary oedema [Unknown]
  - Pleural effusion [Unknown]
